FAERS Safety Report 22633940 (Version 1)
Quarter: 2023Q2

REPORT INFORMATION
  Report Type: Spontaneous
  Country: US (occurrence: None)
  Receive Date: 20230620
  Receipt Date: 20230620
  Transmission Date: 20230722
  Serious: Yes (Hospitalization)
  Sender: FDA-Public Use
  Company Number: None

PATIENT
  Sex: Female

DRUGS (1)
  1. CREON [Suspect]
     Active Substance: PANCRELIPASE AMYLASE\PANCRELIPASE LIPASE\PANCRELIPASE PROTEASE
     Indication: Pancreatic carcinoma
     Dosage: TAKE 2 CAPSULES BY MOUTH WITH MEALS AND 1 CAPSULE WITH SNACKS. MAXIMUM OF 9 CAPSULES PER DAY.??
     Route: 048
     Dates: start: 202304

REACTIONS (1)
  - Gastric ulcer [None]
